FAERS Safety Report 4716481-X (Version None)
Quarter: 2005Q3

REPORT INFORMATION
  Report Type: 
  Country: None (occurrence: None)
  Receive Date: 20050714
  Receipt Date: 20050628
  Transmission Date: 20060218
  Serious: Yes (Other)
  Sender: FDA-Public Use
  Company Number: 215542

PATIENT
  Age: 68 Year
  Sex: Male
  Weight: 51 kg

DRUGS (8)
  1. RITUXAN [Suspect]
     Indication: NON-HODGKIN'S LYMPHOMA
     Dosage: 570 MG, INTRAVENOUS
     Route: 042
     Dates: start: 20011107, end: 20020122
  2. ENDOXAN (CYCLOPHOSPHAMIDE) [Suspect]
     Indication: NON-HODGKIN'S LYMPHOMA
     Dosage: 1000 MG, INTRAVENOUS
     Route: 042
     Dates: start: 20011109, end: 20020129
  3. ADRIAMYCIN PFS [Suspect]
     Indication: NON-HODGKIN'S LYMPHOMA
     Dosage: 10 MG, INTRAVENOUS
     Route: 042
     Dates: start: 20011109, end: 20020129
  4. ONCOVIN [Suspect]
     Indication: NON-HODGKIN'S LYMPHOMA
     Dosage: 0.5 MG, INTRAVENOUS
     Route: 042
     Dates: start: 20011109, end: 20020129
  5. ETOPOSIDE [Suspect]
     Indication: NON-HODGKIN'S LYMPHOMA
     Dosage: 60 MG, INTRAVENOUS
     Route: 042
     Dates: start: 20011109, end: 20020129
  6. PREDONINE (PREDNISOLONE, PREDNISOLONE ACETATE, PREDNISOLONE SODIUM CUC [Suspect]
     Indication: NON-HODGKIN'S LYMPHOMA
     Dosage: 60 MG, INTRAVENOUS
     Route: 042
     Dates: start: 20011109, end: 20020129
  7. LOXONIN (LOXOPROFEN SODIUM) [Concomitant]
  8. POLARAMINE [Concomitant]

REACTIONS (6)
  - ANAEMIA [None]
  - BLOOD PRESSURE DECREASED [None]
  - NEUTROPENIA [None]
  - PLATELET COUNT DECREASED [None]
  - SEPSIS [None]
  - WHITE BLOOD CELL COUNT DECREASED [None]
